FAERS Safety Report 23302166 (Version 1)
Quarter: 2023Q4

REPORT INFORMATION
  Report Type: Spontaneous
  Country: CN (occurrence: CN)
  Receive Date: 20231215
  Receipt Date: 20231215
  Transmission Date: 20240110
  Serious: Yes (Life-Threatening)
  Sender: FDA-Public Use
  Company Number: CN-PFIZER INC-PV202300198563

PATIENT
  Age: 14 Year
  Sex: Female
  Weight: 50 kg

DRUGS (1)
  1. ZITHROMAX [Suspect]
     Active Substance: AZITHROMYCIN DIHYDRATE
     Indication: Bronchitis
     Dosage: 0.5 G, 1X/DAY
     Route: 048
     Dates: start: 20231205, end: 20231205

REACTIONS (2)
  - Dyspnoea [Recovering/Resolving]
  - Cough [Recovering/Resolving]

NARRATIVE: CASE EVENT DATE: 20231205
